FAERS Safety Report 5810917-9 (Version None)
Quarter: 2008Q3

REPORT INFORMATION
  Report Type: 
  Country: None (occurrence: None)
  Receive Date: 20080716
  Receipt Date: 20080704
  Transmission Date: 20090109
  Serious: Yes (Disabling)
  Sender: FDA-Public Use
  Company Number: PHHY2008CH12927

PATIENT
  Age: 68 Year
  Sex: Female

DRUGS (3)
  1. ZOLEDRONIC ACID [Suspect]
     Indication: OSTEOPOROSIS
     Dosage: 5 MG, ONCE/SINGLE
     Dates: start: 20080307
  2. CALCIUM SANDOZ [Concomitant]
     Indication: OSTEOPOROSIS
     Dosage: UNK
  3. VITAMIN D3 [Concomitant]
     Indication: OSTEOPOROSIS

REACTIONS (3)
  - ERYTHEMA [None]
  - FACE OEDEMA [None]
  - FEELING HOT [None]
